FAERS Safety Report 5136634-9 (Version None)
Quarter: 2006Q4

REPORT INFORMATION
  Report Type: 
  Country: None (occurrence: None)
  Receive Date: 20061023
  Receipt Date: 20061009
  Transmission Date: 20070319
  Serious: Yes (Other)
  Sender: FDA-Public Use
  Company Number: 230925

PATIENT
  Age: 60 Year
  Sex: Male
  Weight: 75.7 kg

DRUGS (6)
  1. RITUXAN [Suspect]
     Indication: RHEUMATOID ARTHRITIS
     Dosage: 1000 MG, INTRAVENOUS
     Route: 042
     Dates: start: 20050103
  2. METHOTREXATE [Concomitant]
  3. CELEBREX [Concomitant]
  4. FOLIC ACID [Concomitant]
  5. PREDNISONE TAB [Concomitant]
  6. TYLENOL #3 (CANADA) (ACETAMINOPHEN, CAFFEINE, CODEINE PHOSPHATE) [Concomitant]

REACTIONS (1)
  - NEOPLASM MALIGNANT [None]
